FAERS Safety Report 23392780 (Version 1)
Quarter: 2024Q1

REPORT INFORMATION
  Report Type: Spontaneous
  Country: US (occurrence: US)
  Receive Date: 20240111
  Receipt Date: 20240111
  Transmission Date: 20240410
  Serious: No
  Sender: FDA-Public Use
  Company Number: US-REGENERON PHARMACEUTICALS, INC.-2023-105518

PATIENT
  Sex: Female

DRUGS (1)
  1. EYLEA [Suspect]
     Active Substance: AFLIBERCEPT
     Indication: Macular degeneration
     Dosage: 2 MG, EVERY 12 WEEKS IN LEFT EYE, STRENGTH: 2 MG/0.05ML, FORMULATION: GERRESHEIMER
     Dates: start: 20220316, end: 20230531

REACTIONS (2)
  - Product storage error [Unknown]
  - Intercepted product selection error [Recovered/Resolved]

NARRATIVE: CASE EVENT DATE: 20230823
